FAERS Safety Report 9820568 (Version 5)
Quarter: 2014Q1

REPORT INFORMATION
  Report Type: Report from Study
  Country: VE (occurrence: VE)
  Receive Date: 20140116
  Receipt Date: 20140319
  Transmission Date: 20141002
  Serious: Yes (Hospitalization)
  Sender: FDA-Public Use
  Company Number: VE-ROCHE-1332084

PATIENT
  Age: 54 Year
  Sex: Female
  Weight: 67.4 kg

DRUGS (9)
  1. PERTUZUMAB [Suspect]
     Indication: BREAST CANCER METASTATIC
     Dosage: LOADING DOSE, MOST RECENT DOSE PRIOR TO SAE WAS ON 19/DEC/2013, DAY 1 OF CYCLE 1,
     Route: 042
     Dates: start: 20131219, end: 20131219
  2. PERTUZUMAB [Suspect]
     Dosage: MAINTAINENCE DOSE
     Route: 042
     Dates: end: 20140109
  3. PERTUZUMAB [Suspect]
     Route: 042
     Dates: start: 20140122
  4. TRASTUZUMAB [Suspect]
     Indication: BREAST CANCER METASTATIC
     Dosage: LOADING DOSE, MOST RECENT DOSE PRIOR TO SAE WAS ON 20 DEC 2013
     Route: 042
     Dates: start: 20131220, end: 20131220
  5. TRASTUZUMAB [Suspect]
     Dosage: MAINTAINANCE DOSE
     Route: 042
     Dates: end: 20140109
  6. TRASTUZUMAB [Suspect]
     Route: 042
     Dates: start: 20140123
  7. DOCETAXEL [Suspect]
     Indication: BREAST CANCER METASTATIC
     Route: 042
     Dates: start: 20131220, end: 20140109
  8. DOCETAXEL [Suspect]
     Route: 065
     Dates: start: 20140123
  9. CIPROFLOXACIN HYDROCHLORIDE [Suspect]
     Indication: PRODUCT USED FOR UNKNOWN INDICATION
     Route: 065
     Dates: start: 20131227, end: 20140105

REACTIONS (1)
  - Renal failure acute [Recovered/Resolved]
